FAERS Safety Report 9630121 (Version 1)
Quarter: 2013Q4

REPORT INFORMATION
  Report Type: Spontaneous
  Country: IN (occurrence: IN)
  Receive Date: 20131017
  Receipt Date: 20131017
  Transmission Date: 20140711
  Serious: Yes (Other)
  Sender: FDA-Public Use
  Company Number: PHHY2013IN113187

PATIENT
  Age: 60 Year
  Sex: Male

DRUGS (3)
  1. 5-FLUOROURACIL [Suspect]
     Indication: COLON CANCER STAGE III
  2. LEUCOVORIN [Concomitant]
     Indication: COLON CANCER STAGE III
  3. OXALIPLATIN [Concomitant]
     Indication: COLON CANCER STAGE III

REACTIONS (4)
  - Supraventricular tachycardia [Recovered/Resolved]
  - Chest discomfort [Recovered/Resolved]
  - Palpitations [Recovered/Resolved]
  - Hyperhidrosis [Recovered/Resolved]
